FAERS Safety Report 5229806-6 (Version None)
Quarter: 2007Q1

REPORT INFORMATION
  Report Type: 
  Country: None (occurrence: None)
  Receive Date: 20070206
  Receipt Date: 20061031
  Transmission Date: 20070707
  Serious: No
  Sender: FDA-Public Use
  Company Number: US-GLAXOSMITHKLINE-A0625576A

PATIENT
  Age: 54 Year
  Sex: Female

DRUGS (2)
  1. PAXIL [Suspect]
     Indication: ANXIETY DISORDER
     Dosage: 10MG PER DAY
     Route: 048
  2. ZYPREXA [Concomitant]

REACTIONS (5)
  - ANXIETY [None]
  - EXPIRED DRUG ADMINISTERED [None]
  - HEADACHE [None]
  - LACRIMATION INCREASED [None]
  - NASAL CONGESTION [None]
